FAERS Safety Report 9897723 (Version 1)
Quarter: 2014Q1

REPORT INFORMATION
  Report Type: Spontaneous
  Country: NL (occurrence: NL)
  Receive Date: 20140214
  Receipt Date: 20140214
  Transmission Date: 20141002
  Serious: Yes (Death)
  Sender: FDA-Public Use
  Company Number: NL-ASTRAZENECA-2014SE10075

PATIENT
  Age: 31212 Day
  Sex: Male

DRUGS (1)
  1. GOSERELIN [Suspect]
     Indication: PROSTATE CANCER
     Route: 058
     Dates: start: 20131113

REACTIONS (1)
  - Death [Fatal]
